FAERS Safety Report 9454195 (Version 2)
Quarter: 2017Q4

REPORT INFORMATION
  Report Type: Spontaneous
  Country: US (occurrence: US)
  Receive Date: 20130812
  Receipt Date: 20171204
  Transmission Date: 20180321
  Serious: No
  Sender: FDA-Public Use
  Company Number: US-BAYER-2013-097270

PATIENT
  Age: 4 Month
  Sex: Male

DRUGS (1)
  1. SKYLA [Suspect]
     Active Substance: LEVONORGESTREL
     Dosage: UNK
     Route: 063
     Dates: start: 201306

REACTIONS (2)
  - Exposure during breast feeding [None]
  - Infrequent bowel movements [None]
